FAERS Safety Report 25475081 (Version 5)
Quarter: 2025Q4

REPORT INFORMATION
  Report Type: Spontaneous
  Country: CA (occurrence: CA)
  Receive Date: 20250624
  Receipt Date: 20251226
  Transmission Date: 20260117
  Serious: Yes (Hospitalization)
  Sender: SANDOZ
  Company Number: CA-002147023-NVSC2025CA077636

PATIENT
  Age: 62 Year
  Sex: Female

DRUGS (16)
  1. ZOFRAN [Suspect]
     Active Substance: ONDANSETRON HYDROCHLORIDE
     Indication: Product used for unknown indication
     Dosage: UNK
  2. ZOFRAN [Suspect]
     Active Substance: ONDANSETRON HYDROCHLORIDE
     Dosage: START DATE: 30-MAY-2025 00:00
  3. FEMARA [Suspect]
     Active Substance: LETROZOLE
     Indication: Product used for unknown indication
     Dosage: UNK
  4. FEMARA [Suspect]
     Active Substance: LETROZOLE
     Dosage: START DATE: 30-MAY-2025 00:00
  5. KISQALI [Suspect]
     Active Substance: RIBOCICLIB SUCCINATE
     Indication: Breast cancer metastatic
     Dosage: 600 MG, QD, START DATE: 10-MAY-2025 00:00
  6. KISQALI [Suspect]
     Active Substance: RIBOCICLIB SUCCINATE
     Dosage: 600 MG, QD
     Dates: start: 20250511
  7. KISQALI [Suspect]
     Active Substance: RIBOCICLIB SUCCINATE
     Dosage: UNK
     Dates: start: 20250530, end: 20250609
  8. KISQALI [Suspect]
     Active Substance: RIBOCICLIB SUCCINATE
     Dosage: UNK
  9. HYDROMORPHONE [Concomitant]
     Active Substance: HYDROMORPHONE
     Indication: Product used for unknown indication
     Dosage: UNK
  10. ATIVAN [Concomitant]
     Active Substance: LORAZEPAM
     Indication: Product used for unknown indication
     Dosage: UNK
  11. METOCLOPRAMIDE HYDROCHLORIDE [Concomitant]
     Active Substance: METOCLOPRAMIDE HYDROCHLORIDE
     Indication: Product used for unknown indication
     Dosage: UNK
  12. PANTOPRAZOLE SODIUM [Concomitant]
     Active Substance: PANTOPRAZOLE SODIUM
     Indication: Product used for unknown indication
     Dosage: UNK
  13. PERINDOPRIL [Concomitant]
     Active Substance: PERINDOPRIL
     Indication: Product used for unknown indication
     Dosage: UNK
  14. ZANTAC [Concomitant]
     Active Substance: RANITIDINE HYDROCHLORIDE
     Indication: Product used for unknown indication
     Dosage: UNK
  15. CRESTOR [Concomitant]
     Active Substance: ROSUVASTATIN CALCIUM
     Indication: Product used for unknown indication
     Dosage: UNK
  16. IMOVANE [Concomitant]
     Active Substance: ZOPICLONE
     Indication: Product used for unknown indication
     Dosage: UNK

REACTIONS (17)
  - Neoplasm malignant [Unknown]
  - Intestinal metastasis [Recovered/Resolved]
  - Blood albumin decreased [Unknown]
  - Adjusted calcium increased [Unknown]
  - Blood alkaline phosphatase increased [Unknown]
  - Blood urea increased [Unknown]
  - Blood sodium decreased [Unknown]
  - Platelet count increased [Unknown]
  - Eructation [Recovered/Resolved]
  - Eating disorder [Recovering/Resolving]
  - Hepatic enzyme increased [Recovered/Resolved]
  - Flatulence [Recovered/Resolved]
  - Abdominal pain upper [Recovered/Resolved]
  - Vomiting [Recovering/Resolving]
  - Abdominal discomfort [Unknown]
  - Aspartate aminotransferase increased [Unknown]
  - Alanine aminotransferase increased [Unknown]

NARRATIVE: CASE EVENT DATE: 20250507
